FAERS Safety Report 23878184 (Version 1)
Quarter: 2024Q2

REPORT INFORMATION
  Report Type: Spontaneous
  Country: US (occurrence: None)
  Receive Date: 20240520
  Receipt Date: 20240520
  Transmission Date: 20240716
  Serious: No
  Sender: FDA-Public Use
  Company Number: None

PATIENT
  Age: 67 Year
  Sex: Male

DRUGS (1)
  1. BREXUCABTAGENE AUTOLEUCEL [Suspect]
     Active Substance: BREXUCABTAGENE AUTOLEUCEL

REACTIONS (5)
  - Hypotension [None]
  - Cytokine release syndrome [None]
  - Immune effector cell-associated neurotoxicity syndrome [None]
  - Diverticulitis intestinal perforated [None]
  - Delirium [None]

NARRATIVE: CASE EVENT DATE: 20240122
